FAERS Safety Report 23095378 (Version 1)
Quarter: 2023Q4

REPORT INFORMATION
  Report Type: Spontaneous
  Country: SE (occurrence: SE)
  Receive Date: 20231023
  Receipt Date: 20231023
  Transmission Date: 20240109
  Serious: Yes (Life-Threatening, Hospitalization)
  Sender: FDA-Public Use
  Company Number: None

PATIENT
  Age: 80 Year
  Sex: Male

DRUGS (1)
  1. JARDIANCE [Suspect]
     Active Substance: EMPAGLIFLOZIN
     Indication: Type 2 diabetes mellitus
     Dosage: ONE TABLET
     Route: 048
     Dates: start: 20220421, end: 20230925

REACTIONS (2)
  - Candida sepsis [Recovering/Resolving]
  - Pyelonephritis fungal [Recovering/Resolving]

NARRATIVE: CASE EVENT DATE: 20230925
